FAERS Safety Report 14993952 (Version 1)
Quarter: 2018Q2

REPORT INFORMATION
  Report Type: Spontaneous
  Country: DE (occurrence: DE)
  Receive Date: 20180611
  Receipt Date: 20180611
  Transmission Date: 20180711
  Serious: Yes (Hospitalization)
  Sender: FDA-Public Use
  Company Number: DE-TEVA-2018-DE-905141

PATIENT
  Age: 57 Year
  Sex: Male

DRUGS (11)
  1. CICLOSPORIN [Suspect]
     Active Substance: CYCLOSPORINE
     Dosage: BY MIRROR
  2. EPLERENONE. [Concomitant]
     Active Substance: EPLERENONE
     Dosage: 2-0-0-0
  3. FLUVASTATIN [Concomitant]
     Active Substance: FLUVASTATIN SODIUM
     Dosage: 0-0-1-0
  4. ALLOPURINOL. [Concomitant]
     Active Substance: ALLOPURINOL
     Dosage: 1-0-0-0
  5. CICLOSPORIN [Suspect]
     Active Substance: CYCLOSPORINE
     Dosage: BY MIRROR
  6. ACETYLSALICYLSAEURE [Concomitant]
     Active Substance: ASPIRIN
     Dosage: 0-1-0-0
  7. DESLORATADINE. [Concomitant]
     Active Substance: DESLORATADINE
     Dosage: 1-0-0-0
  8. PREDNISOLONE. [Suspect]
     Active Substance: PREDNISOLONE
     Dosage: 1-0-0-0
  9. CELLCEPT [Suspect]
     Active Substance: MYCOPHENOLATE MOFETIL\MYCOPHENOLATE MOFETIL HYDROCHLORIDE
     Dosage: 2-0-2-0
  10. MAGNESIUM [Concomitant]
     Active Substance: MAGNESIUM
     Dosage: NK MG, 2-0-0-0
     Route: 065
  11. PANTOPRAZOL [Concomitant]
     Active Substance: PANTOPRAZOLE SODIUM
     Dosage: 1-0-0-0

REACTIONS (2)
  - Orthostatic intolerance [Unknown]
  - Abdominal pain [Unknown]
